FAERS Safety Report 5654682-7 (Version None)
Quarter: 2008Q1

REPORT INFORMATION
  Report Type: 
  Country: None (occurrence: None)
  Receive Date: 20080307
  Receipt Date: 20080307
  Transmission Date: 20080703
  Serious: Yes (Other)
  Sender: FDA-Public Use
  Company Number: None

PATIENT
  Age: 75 Year
  Sex: Female
  Weight: 82.5547 kg

DRUGS (1)
  1. HEPARIN [Suspect]
     Indication: SURGERY
     Dosage: 1 ML 2X A DAY 5 DOSES IM
     Route: 030
     Dates: start: 20080115, end: 20080120

REACTIONS (10)
  - CHILLS [None]
  - HYPERHIDROSIS [None]
  - INJECTION SITE INFLAMMATION [None]
  - INJECTION SITE IRRITATION [None]
  - INJECTION SITE PAIN [None]
  - INJECTION SITE PRURITUS [None]
  - INJECTION SITE RASH [None]
  - MASS [None]
  - PARAESTHESIA [None]
  - PYREXIA [None]
